FAERS Safety Report 23658510 (Version 1)
Quarter: 2024Q1

REPORT INFORMATION
  Report Type: Spontaneous
  Country: US (occurrence: None)
  Receive Date: 20240320
  Receipt Date: 20240320
  Transmission Date: 20240409
  Serious: No
  Sender: FDA-Public Use
  Company Number: None

PATIENT
  Age: 43 Year
  Sex: Female
  Weight: 101.38 kg

DRUGS (2)
  1. XOLAIR [Suspect]
     Active Substance: OMALIZUMAB
     Indication: Urticaria chronic
     Dosage: FREQUENCY : MONTHLY;?
     Route: 058
     Dates: start: 20231214, end: 20240320
  2. XOLAIR [Suspect]
     Active Substance: OMALIZUMAB
     Indication: Pruritus

REACTIONS (3)
  - Dyspnoea [None]
  - Anxiety [None]
  - Insomnia [None]

NARRATIVE: CASE EVENT DATE: 20240310
